FAERS Safety Report 5151616-9 (Version None)
Quarter: 2006Q4

REPORT INFORMATION
  Report Type: 
  Country: None (occurrence: None)
  Receive Date: 20061115
  Receipt Date: 20060509
  Transmission Date: 20070319
  Serious: No
  Sender: FDA-Public Use
  Company Number: US-BRISTOL-MYERS SQUIBB COMPANY-13372032

PATIENT
  Age: 28 Year
  Sex: Male
  Weight: 63 kg

DRUGS (2)
  1. SUSTIVA [Suspect]
     Indication: HIV INFECTION
     Dates: start: 20060301
  2. EPZICOM [Concomitant]

REACTIONS (1)
  - DRUG SCREEN POSITIVE [None]
